FAERS Safety Report 14885911 (Version 8)
Quarter: 2019Q2

REPORT INFORMATION
  Report Type: Report from Study
  Country: US (occurrence: US)
  Receive Date: 20180512
  Receipt Date: 20190506
  Transmission Date: 20190711
  Serious: Yes (Other)
  Sender: FDA-Public Use
  Company Number: PHEH2018US015529

PATIENT
  Sex: Female

DRUGS (2)
  1. OXCARBAZEPINE. [Suspect]
     Active Substance: OXCARBAZEPINE
     Indication: PRODUCT USED FOR UNKNOWN INDICATION
     Dosage: UNK
     Route: 065
  2. TRILEPTAL [Suspect]
     Active Substance: OXCARBAZEPINE
     Indication: FACIAL PAIN
     Dosage: 10 ML, BID
     Route: 048

REACTIONS (13)
  - Neuralgia [Recovering/Resolving]
  - Neuropathy peripheral [Unknown]
  - Abdominal discomfort [Unknown]
  - Malaise [Unknown]
  - Pain in jaw [Unknown]
  - Pain [Unknown]
  - Facial pain [Unknown]
  - Product use in unapproved indication [Unknown]
  - Head injury [Unknown]
  - Toothache [Not Recovered/Not Resolved]
  - Tremor [Unknown]
  - Drug intolerance [Unknown]
  - Dizziness [Unknown]
